FAERS Safety Report 6863766-7 (Version None)
Quarter: 2010Q3

REPORT INFORMATION
  Report Type: 
  Country: None (occurrence: None)
  Receive Date: 20100721
  Receipt Date: 20080311
  Transmission Date: 20110219
  Serious: No
  Sender: FDA-Public Use
  Company Number: US-PFIZER INC-2008022851

PATIENT
  Sex: Female

DRUGS (8)
  1. CHANTIX [Suspect]
     Indication: SMOKING CESSATION THERAPY
     Dates: start: 20080201
  2. VALSARTAN [Concomitant]
     Indication: HYPERTENSION
  3. ACETYLSALICYLIC ACID [Concomitant]
  4. HYDROCHLOROTHIAZIDE [Concomitant]
  5. CARDIZEM [Concomitant]
  6. TOPROL-XL [Concomitant]
  7. PERCOCET [Concomitant]
     Indication: PAIN
  8. NEXIUM [Concomitant]

REACTIONS (2)
  - ANAEMIA [None]
  - NAUSEA [None]
